FAERS Safety Report 7491349-7 (Version None)
Quarter: 2011Q2

REPORT INFORMATION
  Report Type: 
  Country: None (occurrence: None)
  Receive Date: 20110518
  Receipt Date: 20110518
  Transmission Date: 20111010
  Serious: No
  Sender: FDA-Public Use
  Company Number: None

PATIENT
  Age: 26 Year
  Sex: Male
  Weight: 70 kg

DRUGS (2)
  1. CIPROFLOXACIN [Suspect]
     Indication: PREOPERATIVE CARE
     Dates: start: 20110502, end: 20110502
  2. CIPROFLOXACIN [Suspect]
     Indication: PROPHYLAXIS
     Dates: start: 20110502, end: 20110502

REACTIONS (1)
  - INJECTION SITE RASH [None]
